FAERS Safety Report 9670228 (Version 2)
Quarter: 2013Q4

REPORT INFORMATION
  Report Type: Spontaneous
  Country: US (occurrence: US)
  Receive Date: 20131105
  Receipt Date: 20131121
  Transmission Date: 20140711
  Serious: Yes (Other)
  Sender: FDA-Public Use
  Company Number: PHEH2013US023040

PATIENT
  Age: 67 Year
  Sex: Female
  Weight: 75 kg

DRUGS (9)
  1. RECLAST [Suspect]
     Indication: AROMATASE INHIBITION THERAPY
     Dosage: UNK
     Route: 042
     Dates: start: 20130808
  2. RECLAST [Suspect]
     Indication: BONE LOSS
  3. RECLAST [Suspect]
     Indication: BREAST CANCER
  4. LISINOPRIL [Concomitant]
     Dosage: DAILY
     Route: 048
  5. AMLODIPINE [Concomitant]
     Dosage: DAILY
     Route: 048
  6. OXYCODON [Concomitant]
     Dosage: DAILY
     Route: 048
  7. SYNTHROID [Concomitant]
     Dosage: DAILY
     Route: 048
  8. DULOXETINE [Concomitant]
     Dosage: DAILY
     Route: 048
  9. LETROZOLE [Concomitant]
     Indication: BREAST CANCER

REACTIONS (2)
  - Primary sequestrum [Recovered/Resolved with Sequelae]
  - Osteonecrosis of jaw [Unknown]
